FAERS Safety Report 17962902 (Version 4)
Quarter: 2022Q1

REPORT INFORMATION
  Report Type: Spontaneous
  Country: JP (occurrence: JP)
  Receive Date: 20200630
  Receipt Date: 20220330
  Transmission Date: 20220423
  Serious: Yes (Hospitalization)
  Sender: FDA-Public Use
  Company Number: JP-BRISTOL-MYERS SQUIBB COMPANY-BMS-2020-051604

PATIENT
  Age: 72 Year
  Sex: Male
  Weight: 52.6 kg

DRUGS (33)
  1. YERVOY [Suspect]
     Active Substance: IPILIMUMAB
     Indication: Malignant melanoma
     Dosage: 150 MILLIGRAM
     Route: 041
     Dates: start: 20200310, end: 20200310
  2. YERVOY [Suspect]
     Active Substance: IPILIMUMAB
     Dosage: 150 MILLIGRAM
     Route: 041
     Dates: start: 20200331, end: 20200331
  3. YERVOY [Suspect]
     Active Substance: IPILIMUMAB
     Dosage: 150 MILLIGRAM
     Route: 041
     Dates: start: 20200421, end: 20200421
  4. YERVOY [Suspect]
     Active Substance: IPILIMUMAB
     Dosage: 150 MILLIGRAM
     Route: 041
     Dates: start: 20200512, end: 20200512
  5. OPDIVO [Suspect]
     Active Substance: NIVOLUMAB
     Indication: Malignant melanoma
     Dosage: 80 MILLIGRAM, ONE TIME DOSE
     Route: 041
     Dates: start: 20200310, end: 20200310
  6. OPDIVO [Suspect]
     Active Substance: NIVOLUMAB
     Dosage: 80 MILLIGRAM, ONE TIME DOSE
     Route: 041
     Dates: start: 20200331, end: 20200331
  7. OPDIVO [Suspect]
     Active Substance: NIVOLUMAB
     Dosage: 80 MILLIGRAM, ONE TIME DOSE
     Route: 041
     Dates: start: 20200421, end: 20200421
  8. OPDIVO [Suspect]
     Active Substance: NIVOLUMAB
     Dosage: 80 MILLIGRAM, ONE TIME DOSE
     Route: 041
     Dates: start: 20200512, end: 20200512
  9. OPDIVO [Suspect]
     Active Substance: NIVOLUMAB
     Dosage: 240 MILLIGRAM,  2 WEEKS 240 MILLIGRAM, ONE TIME DOSE
     Route: 041
     Dates: start: 20200602, end: 20200602
  10. OPDIVO [Suspect]
     Active Substance: NIVOLUMAB
     Dosage: 240 MILLIGRAM,  2 WEEKS 240 MILLIGRAM, ONE TIME DOSE
     Route: 041
     Dates: start: 20200616, end: 20200616
  11. OPDIVO [Suspect]
     Active Substance: NIVOLUMAB
     Dosage: 240 MILLIGRAM, ONE TIME DOSE
     Route: 041
     Dates: start: 20200728, end: 20200728
  12. OPDIVO [Suspect]
     Active Substance: NIVOLUMAB
     Dosage: 240 MILLIGRAM, ONE TIME DOSE
     Route: 041
     Dates: start: 20200811, end: 20200811
  13. OPDIVO [Suspect]
     Active Substance: NIVOLUMAB
     Dosage: 240 MILLIGRAM, ONE TIME DOSE
     Route: 041
     Dates: start: 20200825, end: 20200825
  14. OPDIVO [Suspect]
     Active Substance: NIVOLUMAB
     Dosage: 240 MILLIGRAM, ONE TIME DOSE
     Route: 041
     Dates: start: 20200908, end: 20200908
  15. OPDIVO [Suspect]
     Active Substance: NIVOLUMAB
     Dosage: 240 MILLIGRAM, ONE TIME DOSE
     Route: 041
     Dates: start: 20200929, end: 20200929
  16. OPDIVO [Suspect]
     Active Substance: NIVOLUMAB
     Dosage: 240 MILLIGRAM, ONE TIME DOSE
     Route: 041
     Dates: start: 20201013, end: 20201013
  17. OPDIVO [Suspect]
     Active Substance: NIVOLUMAB
     Dosage: 240 MILLIGRAM, ONE TIME DOSE
     Route: 041
     Dates: start: 20201027, end: 20201027
  18. OPDIVO [Suspect]
     Active Substance: NIVOLUMAB
     Dosage: 240 MILLIGRAM, ONE TIME DOSE
     Route: 041
     Dates: start: 20201110, end: 20201110
  19. OPDIVO [Suspect]
     Active Substance: NIVOLUMAB
     Dosage: 480 MILLIGRAM, ONE TIME DOSE
     Route: 041
     Dates: start: 20201124, end: 20201124
  20. OPDIVO [Suspect]
     Active Substance: NIVOLUMAB
     Dosage: 480 MILLIGRAM, ONE TIME DOSE
     Route: 041
     Dates: start: 20201222, end: 20201222
  21. OPDIVO [Suspect]
     Active Substance: NIVOLUMAB
     Dosage: 480 MILLIGRAM, ONE TIME DOSE
     Route: 041
     Dates: start: 20210119, end: 20210119
  22. OPDIVO [Suspect]
     Active Substance: NIVOLUMAB
     Dosage: 480 MILLIGRAM, ONE TIME DOSE
     Route: 041
     Dates: start: 20210216, end: 20210216
  23. OPDIVO [Suspect]
     Active Substance: NIVOLUMAB
     Dosage: 480 MILLIGRAM, ONE TIME DOSE
     Route: 041
     Dates: start: 20210316, end: 20210316
  24. CALONAL [Concomitant]
     Active Substance: ACETAMINOPHEN
     Indication: Product used for unknown indication
     Dosage: 1 TAB 1 TAB ORAL AT 37.5 DEGREES OR HIGHER. CAN BE TAKEN FOR THE SECOND TIME AFTER OPENING FOR 6 HOU
     Route: 048
     Dates: start: 20200310
  25. CALONAL [Concomitant]
     Active Substance: ACETAMINOPHEN
     Dosage: 8 TAB 2 TAB 2 TAB?DAY AND NIGHT AFTER MEALS, BEFORE SLEEP
     Route: 065
     Dates: start: 20200318
  26. CALONAL [Concomitant]
     Active Substance: ACETAMINOPHEN
     Dosage: 600 MG, Q6H
     Route: 048
     Dates: start: 20200310
  27. TRAMADOL [Concomitant]
     Active Substance: TRAMADOL
     Indication: Pain
     Dosage: 1 TAB 25 MG, WHEN HAVING PAIN
     Route: 048
     Dates: start: 20200318
  28. CARBOCYSTEINE [Concomitant]
     Active Substance: CARBOCYSTEINE
     Indication: Product used for unknown indication
     Dosage: 500 MG, Q8H
     Route: 065
     Dates: start: 20200318
  29. HYALURONATE SODIUM [Concomitant]
     Active Substance: HYALURONATE SODIUM
     Indication: Product used for unknown indication
     Dosage: EYE DROPS BINOCULAR 6 TIMES A DAY
     Route: 047
     Dates: start: 20200310
  30. ISOTONIC SODIUM CHLORIDE SOLUTION [Concomitant]
     Active Substance: SODIUM CHLORIDE
     Indication: Product used for unknown indication
     Dosage: 50 MILLILITER SIDE TUBE 2, SIDE TUBE 4, DRIP
     Route: 065
     Dates: start: 20200310
  31. ISOTONIC SODIUM CHLORIDE SOLUTION [Concomitant]
     Active Substance: SODIUM CHLORIDE
     Dosage: 100 MILLILITER SIDE TUBE 3, DRIP, SIDE TUBE 1
     Route: 065
     Dates: start: 20200310
  32. ISOTONIC SODIUM CHLORIDE SOLUTION [Concomitant]
     Active Substance: SODIUM CHLORIDE
     Dosage: 450 ML
     Route: 041
     Dates: start: 20200310, end: 20200310
  33. POLARAMINE [Concomitant]
     Active Substance: DEXCHLORPHENIRAMINE MALEATE
     Indication: Product used for unknown indication
     Dosage: 5 MG
     Route: 041
     Dates: start: 20200310, end: 20200310

REACTIONS (3)
  - Liver disorder [Recovered/Resolved]
  - Alanine aminotransferase increased [Recovered/Resolved]
  - Aspartate aminotransferase increased [Recovered/Resolved]

NARRATIVE: CASE EVENT DATE: 20200521
